FAERS Safety Report 12761538 (Version 2)
Quarter: 2018Q2

REPORT INFORMATION
  Report Type: Spontaneous
  Country: JP (occurrence: JP)
  Receive Date: 20160920
  Receipt Date: 20180612
  Transmission Date: 20180711
  Serious: Yes (Other)
  Sender: FDA-Public Use
  Company Number: JP-ACCORD-044153

PATIENT
  Age: 54 Year
  Sex: Male
  Weight: 76 kg

DRUGS (3)
  1. CISPLATIN. [Suspect]
     Active Substance: CISPLATIN
     Indication: PENILE CANCER
     Dosage: DAY 1, 2
  2. FLUOROURACIL. [Suspect]
     Active Substance: FLUOROURACIL
     Indication: PENILE CANCER
     Dosage: DAY 2-5
  3. PACLITAXEL/PACLITAXEL LIPOSOME [Suspect]
     Active Substance: PACLITAXEL
     Indication: PENILE CANCER
     Dosage: DAY 1

REACTIONS (3)
  - Renal salt-wasting syndrome [Recovered/Resolved]
  - Loss of consciousness [None]
  - Fall [None]
